FAERS Safety Report 21344627 (Version 1)
Quarter: 2022Q3

REPORT INFORMATION
  Report Type: Spontaneous
  Country: FR (occurrence: FR)
  Receive Date: 20220916
  Receipt Date: 20220916
  Transmission Date: 20221027
  Serious: Yes (Hospitalization, Other)
  Sender: FDA-Public Use
  Company Number: FR-TEVA-2022-FR-2056425

PATIENT
  Age: 12 Month
  Sex: Female

DRUGS (1)
  1. AMOXICILLIN [Suspect]
     Active Substance: AMOXICILLIN
     Indication: Otitis media acute
     Dosage: MAXIMUM DOSE OF 50 MG/KG
     Route: 048

REACTIONS (1)
  - Enterocolitis [Unknown]
